FAERS Safety Report 18456698 (Version 3)
Quarter: 2020Q4

REPORT INFORMATION
  Report Type: Spontaneous
  Country: US (occurrence: US)
  Receive Date: 20201103
  Receipt Date: 20201226
  Transmission Date: 20210114
  Serious: No
  Sender: FDA-Public Use
  Company Number: US-JNJFOC-20201036947

PATIENT
  Age: 28 Year
  Sex: Male
  Weight: 77.18 kg

DRUGS (1)
  1. TREMFYA [Suspect]
     Active Substance: GUSELKUMAB
     Indication: PSORIASIS
     Route: 058
     Dates: start: 201908

REACTIONS (2)
  - Product dose omission issue [Unknown]
  - Suspected product tampering [Unknown]

NARRATIVE: CASE EVENT DATE: 202010
